FAERS Safety Report 18427244 (Version 4)
Quarter: 2025Q2

REPORT INFORMATION
  Report Type: Spontaneous
  Country: DE (occurrence: DE)
  Receive Date: 20201026
  Receipt Date: 20250404
  Transmission Date: 20250717
  Serious: Yes (Other)
  Sender: MYLAN
  Company Number: DE-GLAXOSMITHKLINE-DE2020GSK195601

PATIENT
  Age: 32 Year
  Sex: Female

DRUGS (20)
  1. METHOTREXATE [Suspect]
     Active Substance: METHOTREXATE
     Indication: Systemic lupus erythematosus
  2. METHOTREXATE [Suspect]
     Active Substance: METHOTREXATE
     Indication: Autoimmune haemolytic anaemia
  3. BORTEZOMIB [Suspect]
     Active Substance: BORTEZOMIB
     Indication: Systemic lupus erythematosus
  4. BORTEZOMIB [Suspect]
     Active Substance: BORTEZOMIB
     Indication: Autoimmune haemolytic anaemia
  5. AZATHIOPRINE [Suspect]
     Active Substance: AZATHIOPRINE
     Indication: Systemic lupus erythematosus
  6. AZATHIOPRINE [Suspect]
     Active Substance: AZATHIOPRINE
     Indication: Autoimmune haemolytic anaemia
  7. MYCOPHENOLATE MOFETIL [Suspect]
     Active Substance: MYCOPHENOLATE MOFETIL
     Indication: Systemic lupus erythematosus
  8. MYCOPHENOLATE MOFETIL [Suspect]
     Active Substance: MYCOPHENOLATE MOFETIL
     Indication: Autoimmune haemolytic anaemia
  9. RITUXIMAB [Suspect]
     Active Substance: RITUXIMAB
     Indication: Systemic lupus erythematosus
  10. RITUXIMAB [Suspect]
     Active Substance: RITUXIMAB
     Indication: Autoimmune haemolytic anaemia
  11. HYDROXYCHLOROQUINE [Suspect]
     Active Substance: HYDROXYCHLOROQUINE
     Indication: Systemic lupus erythematosus
  12. HYDROXYCHLOROQUINE [Suspect]
     Active Substance: HYDROXYCHLOROQUINE
     Indication: Autoimmune haemolytic anaemia
  13. CYCLOPHOSPHAMIDE [Suspect]
     Active Substance: CYCLOPHOSPHAMIDE
     Indication: Systemic lupus erythematosus
  14. BELIMUMAB [Suspect]
     Active Substance: BELIMUMAB
     Indication: Systemic lupus erythematosus
  15. BELIMUMAB [Suspect]
     Active Substance: BELIMUMAB
     Indication: Autoimmune haemolytic anaemia
  16. IMMUNE GLOBULIN NOS [Suspect]
     Active Substance: IMMUNE GLOBULIN NOS
     Indication: Autoimmune haemolytic anaemia
  17. CYCLOPHOSPHAMIDE [Suspect]
     Active Substance: CYCLOPHOSPHAMIDE
     Indication: Autoimmune haemolytic anaemia
  18. DARATUMUMAB [Concomitant]
     Active Substance: DARATUMUMAB
     Indication: Systemic lupus erythematosus
  19. PREDNISOLONE [Concomitant]
     Active Substance: PREDNISOLONE
     Indication: Systemic lupus erythematosus
     Dosage: 10 MG, QD
  20. WHOLE BLOOD [Concomitant]
     Active Substance: WHOLE BLOOD
     Indication: Transfusion

REACTIONS (5)
  - Acute respiratory distress syndrome [Unknown]
  - Sepsis [Unknown]
  - Pneumonia [Unknown]
  - Drug resistance [Unknown]
  - Drug ineffective [Unknown]
